FAERS Safety Report 8168941-X (Version None)
Quarter: 2012Q1

REPORT INFORMATION
  Report Type: 
  Country: None (occurrence: None)
  Receive Date: 20120227
  Receipt Date: 20120216
  Transmission Date: 20120608
  Serious: Yes (Hospitalization, Disabling)
  Sender: FDA-Public Use
  Company Number: FR-BAXTER-2012BH004865

PATIENT
  Age: 57 Year
  Sex: Female

DRUGS (6)
  1. CYCLOPHOSPHAMIDE [Suspect]
     Indication: BREAST CANCER
     Route: 042
     Dates: start: 20020626, end: 20021009
  2. TAMOXIFEN CITRATE [Concomitant]
     Indication: HORMONE THERAPY
     Route: 065
     Dates: start: 20021001, end: 20040419
  3. FLUOROURACIL [Suspect]
     Indication: BREAST CANCER
     Route: 042
     Dates: start: 20020626, end: 20021009
  4. FLUCONAZOLE [Concomitant]
     Indication: INFECTION
     Route: 065
     Dates: start: 20111108
  5. EPIRUBICIN HYDROCHLORIDE [Suspect]
     Indication: BREAST CANCER
     Route: 042
     Dates: start: 20020626, end: 20021009
  6. ANASTROZOLE [Concomitant]
     Indication: HORMONE THERAPY
     Route: 065
     Dates: start: 20040420, end: 20070320

REACTIONS (2)
  - CARDIAC FAILURE [None]
  - CONGESTIVE CARDIOMYOPATHY [None]
